FAERS Safety Report 6452818-1 (Version None)
Quarter: 2009Q4

REPORT INFORMATION
  Report Type: 
  Country: None (occurrence: None)
  Receive Date: 20091117
  Receipt Date: 20091103
  Transmission Date: 20100525
  Serious: Yes (Hospitalization, Other)
  Sender: FDA-Public Use
  Company Number: WAES 0910USA02623

PATIENT
  Age: 48 Year
  Sex: Male
  Weight: 46.7205 kg

DRUGS (18)
  1. TAB RALTEGRAVIR POTASSIUM [Suspect]
     Indication: HIV INFECTION
     Dosage: 600 MG/BID/PO
     Route: 048
     Dates: start: 20051010
  2. TENOFOVIR DISOPROXIL FUMARATE [Suspect]
     Indication: HIV INFECTION
     Dosage: 300 MG/DAILY/
     Dates: start: 20051010
  3. LAMIVUDINE [Suspect]
     Indication: HIV INFECTION
     Dosage: 300 MG/DAILY/
     Dates: start: 20051010
  4. PLACEBO (UNSPECIFIED) UNK [Suspect]
     Dosage: PO
     Route: 048
     Dates: start: 20051010
  5. KENACOMB OTIC [Concomitant]
  6. ACETAMINOPHEN AND CODEINE PHOSPHATE [Concomitant]
  7. DICLOFENAC [Concomitant]
  8. ESOMEPRAZOLE [Concomitant]
  9. LERCANIDIPINE HYDROCHLORIDE [Concomitant]
  10. MELOXICAM [Concomitant]
  11. METOCLOPRAMIDE HYDROCHLORIDE [Concomitant]
  12. MIRTAZAPINE [Concomitant]
  13. OXAZEPAM [Concomitant]
  14. OXYCODONE HCL [Concomitant]
  15. PERINDOPRIL ARGININE [Concomitant]
  16. TADALAFIL [Concomitant]
  17. TEMAZEPAM [Concomitant]
  18. VENLAFAXINE HYDROCHLORIDE [Concomitant]

REACTIONS (8)
  - BACK PAIN [None]
  - BRONCHITIS [None]
  - DEPRESSION [None]
  - HAEMOGLOBIN DECREASED [None]
  - KNEE ARTHROPLASTY [None]
  - OSTEONECROSIS [None]
  - OSTEOPOROSIS [None]
  - PAIN [None]
